FAERS Safety Report 5709587-X (Version None)
Quarter: 2008Q2

REPORT INFORMATION
  Report Type: 
  Country: None (occurrence: None)
  Receive Date: 20080418
  Receipt Date: 20080402
  Transmission Date: 20081010
  Serious: Yes (Hospitalization, Congenital Anomaly)
  Sender: FDA-Public Use
  Company Number: A0677480A

PATIENT
  Sex: Male
  Weight: 3.8 kg

DRUGS (3)
  1. PAXIL [Suspect]
     Indication: ANXIETY
     Dosage: 10MG PER DAY
     Dates: start: 20020501, end: 20061201
  2. PAROXETINE HCL [Suspect]
     Indication: ANXIETY
     Dosage: 20MG PER DAY
     Dates: start: 20031001, end: 20061201
  3. VITAMIN TAB [Concomitant]
     Dates: start: 20020401, end: 20021201

REACTIONS (39)
  - APERT'S SYNDROME [None]
  - ASTIGMATISM [None]
  - ATRIAL SEPTAL DEFECT [None]
  - BONE DEVELOPMENT ABNORMAL [None]
  - BRACHYCEPHALY [None]
  - BRONCHIAL HYPERREACTIVITY [None]
  - CARDIAC MURMUR [None]
  - CONDUCTIVE DEAFNESS [None]
  - CONGENITAL FACIAL NERVE HYPOPLASIA [None]
  - CONGENITAL HAND MALFORMATION [None]
  - CRANIOSYNOSTOSIS [None]
  - CYST [None]
  - DRUG EXPOSURE DURING PREGNANCY [None]
  - EUSTACHIAN TUBE DYSFUNCTION [None]
  - EXOPHTHALMOS [None]
  - FOETAL HEART RATE DECELERATION [None]
  - HYDROCEPHALUS [None]
  - HYDRONEPHROSIS [None]
  - HYPERTELORISM OF ORBIT [None]
  - HYPOSPADIAS [None]
  - IMPAIRED HEALING [None]
  - JAUNDICE NEONATAL [None]
  - KIDNEY ENLARGEMENT [None]
  - MICROGNATHIA [None]
  - OTITIS MEDIA CHRONIC [None]
  - PALATAL DISORDER [None]
  - PATENT DUCTUS ARTERIOSUS [None]
  - RENAL IMPAIRMENT [None]
  - RESPIRATION ABNORMAL [None]
  - RESPIRATORY DISTRESS [None]
  - RESPIRATORY TRACT MALFORMATION [None]
  - SCAPHOCEPHALY [None]
  - SYNDACTYLY [None]
  - TACHYCARDIA [None]
  - TRICUSPID VALVE INCOMPETENCE [None]
  - URETERIC DILATATION [None]
  - URETERIC OBSTRUCTION [None]
  - VENTRICULAR SEPTAL DEFECT [None]
  - WHEEZING [None]
